FAERS Safety Report 10034323 (Version 2)
Quarter: 2014Q2

REPORT INFORMATION
  Report Type: Spontaneous
  Country: US (occurrence: None)
  Receive Date: 20140321
  Receipt Date: 20140401
  Transmission Date: 20141212
  Serious: Yes (Other)
  Sender: FDA-Public Use
  Company Number: NXG-14-003

PATIENT
  Age: 50 Year
  Sex: Female

DRUGS (1)
  1. FIORICET [Suspect]
     Indication: PAIN

REACTIONS (5)
  - Dysgeusia [None]
  - Dry mouth [None]
  - Dry skin [None]
  - Ocular hyperaemia [None]
  - Somnolence [None]
